FAERS Safety Report 4842371-8 (Version None)
Quarter: 2005Q4

REPORT INFORMATION
  Report Type: 
  Country: None (occurrence: None)
  Receive Date: 20051125
  Receipt Date: 20051111
  Transmission Date: 20060501
  Serious: Yes (Hospitalization)
  Sender: FDA-Public Use
  Company Number: RU-2005-017748

PATIENT
  Age: 22 Year
  Sex: Male

DRUGS (1)
  1. BETAFERON 250 UG, 500 UG AND COPAXONE (BETAFERON (SH Y 579E)) INJECTIO [Suspect]
     Indication: MULTIPLE SCLEROSIS
     Dosage: 8 OR 16 MIU, EVERY 2 D, SUBCUTANEOUS
     Route: 058
     Dates: start: 20050523, end: 20051005

REACTIONS (2)
  - ASTHMA [None]
  - CONDITION AGGRAVATED [None]
